FAERS Safety Report 17993603 (Version 5)
Quarter: 2021Q3

REPORT INFORMATION
  Report Type: Spontaneous
  Country: US (occurrence: US)
  Receive Date: 20200708
  Receipt Date: 20210802
  Transmission Date: 20211014
  Serious: Yes (Other)
  Sender: FDA-Public Use
  Company Number: US-BIOGEN-2020BI00893217

PATIENT
  Age: 69 Year
  Sex: Female
  Weight: 60.38 kg

DRUGS (15)
  1. TYSABRI [Suspect]
     Active Substance: NATALIZUMAB
     Indication: RELAPSING-REMITTING MULTIPLE SCLEROSIS
     Route: 065
     Dates: start: 20200624
  2. TYSABRI [Suspect]
     Active Substance: NATALIZUMAB
     Route: 042
     Dates: start: 202006
  3. HYDROCODONE?ACETAMINOPHEN [Concomitant]
     Active Substance: ACETAMINOPHEN\HYDROCODONE
     Indication: PAIN
     Dosage: 5?325 MILLIGRAMS, 1/2 (HALF) TO1 TAB, PRN
     Route: 048
  4. KEPPRA [Concomitant]
     Active Substance: LEVETIRACETAM
     Indication: PRODUCT USED FOR UNKNOWN INDICATION
     Route: 065
     Dates: end: 20200605
  5. PROVIGIL [Concomitant]
     Active Substance: MODAFINIL
     Indication: PRODUCT USED FOR UNKNOWN INDICATION
     Route: 048
  6. VITAMIN D [Concomitant]
     Active Substance: VITAMIN D NOS
     Indication: PRODUCT USED FOR UNKNOWN INDICATION
     Dosage: 50 MCG (2000UT)
     Route: 048
  7. TYSABRI [Suspect]
     Active Substance: NATALIZUMAB
     Route: 042
  8. CYMBALTA [Concomitant]
     Active Substance: DULOXETINE HYDROCHLORIDE
     Indication: PRODUCT USED FOR UNKNOWN INDICATION
     Route: 048
  9. SYNTHROID [Concomitant]
     Active Substance: LEVOTHYROXINE SODIUM
     Indication: PRODUCT USED FOR UNKNOWN INDICATION
     Route: 048
  10. TOPIRAMATE. [Concomitant]
     Active Substance: TOPIRAMATE
     Indication: PRODUCT USED FOR UNKNOWN INDICATION
     Dosage: 4?25MG TABLETS, BID TOTAL OF 200MG/DAY
     Route: 048
  11. ASPIR?LOW [Concomitant]
     Active Substance: ASPIRIN
     Indication: PRODUCT USED FOR UNKNOWN INDICATION
     Route: 048
  12. GLYBURIDE. [Concomitant]
     Active Substance: GLYBURIDE
     Indication: PRODUCT USED FOR UNKNOWN INDICATION
     Route: 048
  13. AMITRYPTILINE HCL [Concomitant]
     Active Substance: AMITRIPTYLINE HYDROCHLORIDE
     Indication: PRODUCT USED FOR UNKNOWN INDICATION
     Route: 065
     Dates: end: 20200515
  14. CVS VITAMIN B 12 [Concomitant]
     Indication: PRODUCT USED FOR UNKNOWN INDICATION
     Route: 048
  15. LUNESTA [Concomitant]
     Active Substance: ESZOPICLONE
     Indication: PRODUCT USED FOR UNKNOWN INDICATION
     Dosage: QHS
     Route: 048

REACTIONS (35)
  - Seizure [Unknown]
  - Memory impairment [Unknown]
  - Choking [Unknown]
  - Tinnitus [Unknown]
  - Diabetes mellitus [Unknown]
  - Ear discomfort [Unknown]
  - Headache [Unknown]
  - Nausea [Unknown]
  - Gastrointestinal disorder [Unknown]
  - Visual impairment [Unknown]
  - Stress urinary incontinence [Unknown]
  - Pain in extremity [Unknown]
  - Multiple sclerosis [Unknown]
  - Neck pain [Unknown]
  - Relapsing-remitting multiple sclerosis [Unknown]
  - Fatigue [Unknown]
  - Depression [Unknown]
  - Dizziness [Unknown]
  - Influenza [Unknown]
  - Vision blurred [Unknown]
  - Hypoaesthesia [Unknown]
  - Chest pain [Unknown]
  - Anxiety [Unknown]
  - Photosensitivity reaction [Unknown]
  - Migraine [Unknown]
  - Paraesthesia [Unknown]
  - Back pain [Unknown]
  - Muscle spasms [Unknown]
  - Cognitive disorder [Unknown]
  - Aphasia [Unknown]
  - Amnesia [Unknown]
  - Dyspnoea [Unknown]
  - Asthenia [Unknown]
  - Head injury [Unknown]
  - Renal injury [Unknown]

NARRATIVE: CASE EVENT DATE: 202006
